FAERS Safety Report 9459124 (Version 2)
Quarter: 2013Q3

REPORT INFORMATION
  Report Type: Spontaneous
  Country: CA (occurrence: CA)
  Receive Date: 20130814
  Receipt Date: 20130820
  Transmission Date: 20140515
  Serious: Yes (Other)
  Sender: FDA-Public Use
  Company Number: CA-BAXTER-2013BAX031380

PATIENT
  Age: 39 Year
  Sex: Male

DRUGS (6)
  1. DIANEAL PD4 SOLUTION WITH 2.5% DEXTROSE AND 2.5 MEQ/L CALCIUM [Suspect]
     Indication: RENAL IMPAIRMENT
     Route: 033
  2. DIANEAL PD4 SOLUTION WITH 2.5% DEXTROSE AND 2.5 MEQ/L CALCIUM [Suspect]
     Route: 033
  3. DIANEAL PD4 SOLUTION WITH 4.25% DEXTROSE AND 2.5 MEQ/L CALCIUM [Suspect]
     Indication: RENAL IMPAIRMENT
     Route: 033
  4. DIANEAL PD4 SOLUTION WITH 4.25% DEXTROSE AND 2.5 MEQ/L CALCIUM [Suspect]
     Route: 033
  5. EXTRANEAL [Suspect]
     Indication: RENAL IMPAIRMENT
     Route: 033
  6. EXTRANEAL [Suspect]
     Route: 033

REACTIONS (2)
  - Peritoneal dialysis complication [Unknown]
  - Hernia [Recovered/Resolved]
